FAERS Safety Report 24055291 (Version 1)
Quarter: 2024Q3

REPORT INFORMATION
  Report Type: Spontaneous
  Country: GB (occurrence: GB)
  Receive Date: 20240705
  Receipt Date: 20240705
  Transmission Date: 20241017
  Serious: Yes (Other)
  Sender: DR REDDYS
  Company Number: None

PATIENT
  Age: 88 Year
  Sex: Male

DRUGS (2)
  1. AZACITIDINE [Suspect]
     Active Substance: AZACITIDINE
     Indication: Acute myeloid leukaemia
     Dosage: BATCH NUMBER: NOT AVAILABLE
     Dates: start: 2019
  2. VENETOCLAX [Suspect]
     Active Substance: VENETOCLAX
     Indication: Acute myeloid leukaemia
     Dosage: BATCH NUMBER: NOT AVAILABLE
     Route: 048
     Dates: start: 2019

REACTIONS (2)
  - Acute myeloid leukaemia recurrent [Unknown]
  - FLT3 gene mutation [Unknown]

NARRATIVE: CASE EVENT DATE: 20240101
